FAERS Safety Report 6941083-4 (Version None)
Quarter: 2010Q3

REPORT INFORMATION
  Report Type: 
  Country: None (occurrence: None)
  Receive Date: 20100825
  Receipt Date: 20100820
  Transmission Date: 20110219
  Serious: Yes (Hospitalization, Other)
  Sender: FDA-Public Use
  Company Number: HU-BRISTOL-MYERS SQUIBB COMPANY-15250970

PATIENT
  Age: 80 Year
  Sex: Male
  Weight: 85 kg

DRUGS (16)
  1. CISPLATIN [Suspect]
     Indication: NON-SMALL CELL LUNG CANCER
     Dosage: LAST INF: 13JUL(5TH INF)
     Route: 042
     Dates: start: 20100419
  2. NECITUMUMAB [Suspect]
     Indication: NON-SMALL CELL LUNG CANCER
     Dosage: LAST INF: 20JUL10(10TH INF)
     Route: 042
     Dates: start: 20100419
  3. GEMCITABINE HCL [Suspect]
     Indication: NON-SMALL CELL LUNG CANCER
     Dosage: LAST INF: 20JUL10(5TH INF)
     Route: 042
     Dates: start: 20100419
  4. ASPIRIN [Concomitant]
     Indication: ARTERIOSCLEROSIS OBLITERANS
  5. ATORVASTATIN [Concomitant]
     Indication: ARTERIOSCLEROSIS OBLITERANS
  6. PENTOXIFYLLINE [Concomitant]
     Indication: ARTERIOSCLEROSIS OBLITERANS
  7. SPIRIVA [Concomitant]
     Indication: CHRONIC OBSTRUCTIVE PULMONARY DISEASE
  8. TARDYFERON-FOL [Concomitant]
     Indication: ANAEMIA PROPHYLAXIS
     Dates: start: 20100416
  9. FOSTER [Concomitant]
     Indication: CHRONIC OBSTRUCTIVE PULMONARY DISEASE
     Dates: start: 20100601
  10. DOXYCYCLINE [Concomitant]
     Indication: RASH
     Dosage: CAPSULE
     Dates: start: 20100503
  11. ELIDEL [Concomitant]
     Indication: RASH
     Dates: start: 20100503
  12. DALACIN-T [Concomitant]
     Indication: RASH
     Dates: start: 20100503
  13. NEULASTA [Concomitant]
     Indication: PROPHYLAXIS
     Dates: start: 20100721, end: 20100721
  14. FORMOTEROL FUMARATE [Concomitant]
     Indication: PROPHYLAXIS
  15. VITAMIN B-12 [Concomitant]
     Indication: PROPHYLAXIS
     Dates: start: 20100416, end: 20100416
  16. FENISTIL [Concomitant]
     Indication: PROPHYLAXIS
     Dates: start: 20100427, end: 20100503

REACTIONS (3)
  - CONVULSION [None]
  - PLEURAL EFFUSION [None]
  - THROMBOCYTOPENIA [None]
